FAERS Safety Report 11814694 (Version 1)
Quarter: 2015Q4

REPORT INFORMATION
  Report Type: Spontaneous
  Country: US (occurrence: US)
  Receive Date: 20151209
  Receipt Date: 20151209
  Transmission Date: 20160305
  Serious: No
  Sender: FDA-Public Use
  Company Number: GXBR2015US002350

PATIENT
  Sex: Female

DRUGS (1)
  1. SOLARAZE [Suspect]
     Active Substance: DICLOFENAC SODIUM
     Indication: ACTINIC KERATOSIS
     Dosage: UNK DF, UNK
     Route: 061

REACTIONS (1)
  - Incorrect route of drug administration [Unknown]
